FAERS Safety Report 7208621-8 (Version None)
Quarter: 2011Q1

REPORT INFORMATION
  Report Type: 
  Country: None (occurrence: None)
  Receive Date: 20110104
  Receipt Date: 20101228
  Transmission Date: 20110831
  Serious: Yes (Hospitalization)
  Sender: FDA-Public Use
  Company Number: US-ROCHE-740639

PATIENT
  Sex: Male

DRUGS (2)
  1. CAPECITABINE [Suspect]
     Indication: HEPATIC CANCER METASTATIC
     Route: 048
     Dates: start: 20101001, end: 20101024
  2. CAPECITABINE [Suspect]
     Dosage: REDUCED DOSE.
     Route: 048
     Dates: start: 20101210

REACTIONS (7)
  - MUCOSAL INFLAMMATION [None]
  - DIARRHOEA [None]
  - PALMAR-PLANTAR ERYTHRODYSAESTHESIA SYNDROME [None]
  - LIP HAEMORRHAGE [None]
  - ONYCHOMADESIS [None]
  - STOMATITIS [None]
  - EYELID MARGIN CRUSTING [None]
